FAERS Safety Report 10159302 (Version 1)
Quarter: 2014Q2

REPORT INFORMATION
  Report Type: Spontaneous
  Country: US (occurrence: US)
  Receive Date: 20140508
  Receipt Date: 20140508
  Transmission Date: 20141212
  Serious: No
  Sender: FDA-Public Use
  Company Number: US-TEVA-480148USA

PATIENT
  Sex: Male
  Weight: 80.81 kg

DRUGS (1)
  1. PROAIR HFA [Suspect]
     Indication: WHEEZING
     Dosage: 2 PUFFS FOUR TIMES PER DAY PRN
     Route: 055
     Dates: start: 201311

REACTIONS (3)
  - Chest discomfort [Not Recovered/Not Resolved]
  - Balance disorder [Not Recovered/Not Resolved]
  - Dizziness [Not Recovered/Not Resolved]
